FAERS Safety Report 19829438 (Version 1)
Quarter: 2021Q3

REPORT INFORMATION
  Report Type: Spontaneous
  Country: GB (occurrence: GB)
  Receive Date: 20210914
  Receipt Date: 20210914
  Transmission Date: 20211014
  Serious: Yes (Other)
  Sender: FDA-Public Use
  Company Number: GB-HRAPH01-2021001002

PATIENT
  Age: 26 Year
  Sex: Female
  Weight: 103 kg

DRUGS (3)
  1. PARACETAMOL [Concomitant]
     Active Substance: ACETAMINOPHEN
     Dosage: UNK
     Route: 065
  2. TRANEXAMIC ACID. [Concomitant]
     Active Substance: TRANEXAMIC ACID
     Dosage: UNK
     Route: 065
  3. ELLAONE [Suspect]
     Active Substance: ULIPRISTAL ACETATE
     Dosage: UNK
     Route: 048
     Dates: start: 20210303, end: 20210303

REACTIONS (2)
  - Heavy menstrual bleeding [Not Recovered/Not Resolved]
  - Amenorrhoea [Unknown]

NARRATIVE: CASE EVENT DATE: 20210303
